FAERS Safety Report 6017921-9 (Version None)
Quarter: 2008Q4

REPORT INFORMATION
  Report Type: 
  Country: None (occurrence: None)
  Receive Date: 20081223
  Receipt Date: 20081217
  Transmission Date: 20090506
  Serious: Yes (Other)
  Sender: FDA-Public Use
  Company Number: PR-ABBOTT-08P-163-0490082-00

PATIENT
  Age: 26 Year
  Sex: Female

DRUGS (3)
  1. RITONAVIR SOFT GELATIN CAPSULES [Suspect]
     Indication: HIV INFECTION
     Route: 048
     Dates: start: 20070627, end: 20080304
  2. ATAZANAVIR [Concomitant]
     Indication: HIV INFECTION
     Route: 048
     Dates: start: 20070627
  3. EPZICOM [Concomitant]
     Indication: ANTIRETROVIRAL THERAPY
     Route: 048
     Dates: start: 20070627

REACTIONS (1)
  - ABORTION SPONTANEOUS [None]
